FAERS Safety Report 5413256-3 (Version None)
Quarter: 2007Q3

REPORT INFORMATION
  Report Type: 
  Country: None (occurrence: None)
  Receive Date: 20070814
  Receipt Date: 20070530
  Transmission Date: 20080115
  Serious: No
  Sender: FDA-Public Use
  Company Number: US-KINGPHARMUSA00001-K200700661

PATIENT

DRUGS (1)
  1. DELESTROGEN [Suspect]
     Dosage: 20 MG, UNK

REACTIONS (3)
  - DRUG DISPENSING ERROR [None]
  - DRUG INEFFECTIVE [None]
  - UNDERDOSE [None]
